FAERS Safety Report 4311237-4 (Version None)
Quarter: 2004Q1

REPORT INFORMATION
  Report Type: 
  Country: None (occurrence: None)
  Receive Date: 20040302
  Receipt Date: 20040217
  Transmission Date: 20041129
  Serious: Yes (Hospitalization)
  Sender: FDA-Public Use
  Company Number: US-SHR-04-021356

PATIENT
  Age: 41 Year
  Sex: Male
  Weight: 95.7 kg

DRUGS (11)
  1. FLUDARA [Suspect]
     Indication: HAIRY CELL LEUKAEMIA
     Dosage: 25 MG/M2 D1-5, INTRAVENOUS
     Route: 042
     Dates: start: 20040126, end: 20040130
  2. RITUXAN [Suspect]
     Dosage: DAY 2 AND DAY 5, INTRAVENOUS SEE IMAGE
     Route: 042
     Dates: start: 20040126, end: 20040130
  3. RITUXAN [Suspect]
     Dosage: DAY 2 AND DAY 5, INTRAVENOUS SEE IMAGE
     Route: 042
     Dates: start: 20040210, end: 20040210
  4. BACTRIM DS [Concomitant]
  5. FAMVIR [Concomitant]
  6. PRILOSEC [Concomitant]
  7. AMBIEN [Concomitant]
  8. OXYCODONE (OXYCODONE) [Concomitant]
  9. ALLOPURINOL [Concomitant]
  10. COMPAZINE [Concomitant]
  11. STOOL SOFTENER (DOCUSATE SODIUM) [Concomitant]

REACTIONS (7)
  - ACQUIRED OESOPHAGEAL WEB [None]
  - HAEMATOCRIT DECREASED [None]
  - ILEUS PARALYTIC [None]
  - LIPASE INCREASED [None]
  - OESOPHAGITIS [None]
  - PLATELET COUNT DECREASED [None]
  - WHITE BLOOD CELL COUNT DECREASED [None]
